FAERS Safety Report 24817366 (Version 1)
Quarter: 2025Q1

REPORT INFORMATION
  Report Type: Spontaneous
  Country: US (occurrence: US)
  Receive Date: 20250108
  Receipt Date: 20250108
  Transmission Date: 20250408
  Serious: Yes (Hospitalization, Other)
  Sender: SANDOZ
  Company Number: US-SANDOZ-SDZ2025US000171

PATIENT
  Age: 63 Year
  Sex: Male

DRUGS (5)
  1. FABRAZYME [Suspect]
     Active Substance: AGALSIDASE BETA
     Indication: Fabry^s disease
     Dosage: 70 MG, Q2W
     Route: 042
     Dates: start: 20120417
  2. FABRAZYME [Suspect]
     Active Substance: AGALSIDASE BETA
     Dosage: 70 MG, Q2W
     Route: 042
     Dates: start: 20120430
  3. FABRAZYME [Suspect]
     Active Substance: AGALSIDASE BETA
     Dosage: 70 MG, Q2W
     Route: 042
     Dates: start: 20220617
  4. TACROLIMUS [Suspect]
     Active Substance: TACROLIMUS
     Indication: Product used for unknown indication
     Route: 065
  5. CYCLOSPORINE [Concomitant]
     Active Substance: CYCLOSPORINE
     Indication: Product used for unknown indication
     Route: 065

REACTIONS (13)
  - Transient ischaemic attack [Recovering/Resolving]
  - Atrioventricular block complete [Recovering/Resolving]
  - Skull fracture [Recovering/Resolving]
  - Dehydration [Recovering/Resolving]
  - Prostate cancer [Recovering/Resolving]
  - Renal transplant [Recovering/Resolving]
  - Skin cancer [Unknown]
  - Glomerular filtration rate abnormal [Unknown]
  - Muscle disorder [Unknown]
  - Feeling abnormal [Unknown]
  - White blood cell count decreased [Unknown]
  - Fall [Recovering/Resolving]
  - Heart rate decreased [Recovering/Resolving]

NARRATIVE: CASE EVENT DATE: 20201020
